FAERS Safety Report 25003132 (Version 1)
Quarter: 2025Q1

REPORT INFORMATION
  Report Type: Spontaneous
  Country: FR (occurrence: FR)
  Receive Date: 20250224
  Receipt Date: 20250224
  Transmission Date: 20250409
  Serious: Yes (Other)
  Sender: GLAXOSMITHKLINE
  Company Number: None

PATIENT

DRUGS (1)
  1. LAMICTAL [Suspect]
     Active Substance: LAMOTRIGINE
     Indication: Epilepsy
     Dosage: 3 DF, QD
     Route: 048
     Dates: start: 2014

REACTIONS (5)
  - Negative thoughts [Unknown]
  - Aggression [Unknown]
  - Insomnia [Unknown]
  - Haematoma [Unknown]
  - Drug ineffective [Unknown]
